FAERS Safety Report 6141687-5 (Version None)
Quarter: 2009Q1

REPORT INFORMATION
  Report Type: 
  Country: None (occurrence: None)
  Receive Date: 20090331
  Receipt Date: 20090331
  Transmission Date: 20090719
  Serious: Yes (Life-Threatening, Hospitalization)
  Sender: FDA-Public Use
  Company Number: None

PATIENT
  Age: 3 Year
  Sex: Male
  Weight: 14.5 kg

DRUGS (1)
  1. CARBAMAZEPINE [Suspect]
     Indication: CONVULSION
     Dosage: 50 MG BID PO
     Route: 048
     Dates: start: 20090319, end: 20090322

REACTIONS (2)
  - HYPERSENSITIVITY [None]
  - NO THERAPEUTIC RESPONSE [None]
